FAERS Safety Report 5216636-4 (Version None)
Quarter: 2007Q1

REPORT INFORMATION
  Report Type: 
  Country: None (occurrence: None)
  Receive Date: 20061130
  Receipt Date: 20060807
  Transmission Date: 20070707
  Serious: Yes (Hospitalization)
  Sender: FDA-Public Use
  Company Number: US200606005590

PATIENT
  Age: 28 Year
  Sex: Female
  Weight: 122.4 kg

DRUGS (2)
  1. ZYPREXA [Suspect]
     Dosage: 10 MG, ORAL
     Route: 048
     Dates: start: 20031201, end: 20051212
  2. LEXAPRO [Concomitant]

REACTIONS (2)
  - DIABETES MELLITUS [None]
  - OBESITY [None]
